FAERS Safety Report 25409816 (Version 1)
Quarter: 2025Q2

REPORT INFORMATION
  Report Type: Spontaneous
  Country: US (occurrence: US)
  Receive Date: 20250607
  Receipt Date: 20250607
  Transmission Date: 20250716
  Serious: No
  Sender: RIGEL PHARMACEUTICALS
  Company Number: US-RIGEL Pharmaceuticals. INC-20250400034

PATIENT
  Sex: Male

DRUGS (1)
  1. TAVALISSE [Suspect]
     Active Substance: FOSTAMATINIB
     Indication: Immune thrombocytopenia
     Dates: start: 20220727

REACTIONS (6)
  - Muscle spasms [Unknown]
  - Sciatica [Unknown]
  - Gait disturbance [Unknown]
  - Dehydration [Unknown]
  - Blood urea increased [Unknown]
  - Swelling [Unknown]
